FAERS Safety Report 10052367 (Version 4)
Quarter: 2014Q2

REPORT INFORMATION
  Report Type: Spontaneous
  Country: CH (occurrence: CH)
  Receive Date: 20140402
  Receipt Date: 20140425
  Transmission Date: 20141212
  Serious: Yes (Hospitalization, Other)
  Sender: FDA-Public Use
  Company Number: CH-JNJFOC-20140316126

PATIENT
  Sex: Male

DRUGS (6)
  1. REMICADE [Suspect]
     Indication: COLITIS ULCERATIVE
     Dosage: 8-12 WEEKS
     Route: 064
     Dates: start: 20130823
  2. REMICADE [Suspect]
     Indication: COLITIS ULCERATIVE
     Dosage: 8-12 WEEKS
     Route: 064
     Dates: start: 20130628
  3. REMICADE [Suspect]
     Indication: COLITIS ULCERATIVE
     Dosage: 8-12 WEEKS
     Route: 064
     Dates: start: 20130503
  4. REMICADE [Suspect]
     Indication: COLITIS ULCERATIVE
     Dosage: 8-12 WEEKS
     Route: 064
     Dates: start: 20130315
  5. REMICADE [Suspect]
     Indication: COLITIS ULCERATIVE
     Dosage: 8-12 WEEKS
     Route: 064
     Dates: start: 20121228
  6. IMUREK [Suspect]
     Indication: COLITIS ULCERATIVE
     Route: 048

REACTIONS (6)
  - Gastrointestinal inflammation [Unknown]
  - Bacteraemia [Unknown]
  - Venous thrombosis [Recovered/Resolved]
  - Dehydration [Unknown]
  - Metabolic acidosis [Unknown]
  - Foetal exposure during pregnancy [Recovered/Resolved]
